FAERS Safety Report 11119349 (Version 2)
Quarter: 2015Q2

REPORT INFORMATION
  Report Type: Spontaneous
  Country: AR (occurrence: AR)
  Receive Date: 20150518
  Receipt Date: 20150623
  Transmission Date: 20150821
  Serious: Yes (Hospitalization)
  Sender: FDA-Public Use
  Company Number: AR-PFIZER INC-2015165083

PATIENT
  Age: 31 Year
  Sex: Female

DRUGS (6)
  1. PROGYNOVA [Concomitant]
     Active Substance: ESTRADIOL VALERATE
     Dosage: UNK
  2. GENOTROPIN [Suspect]
     Active Substance: SOMATROPIN
     Indication: GROWTH HORMONE DEFICIENCY
     Dosage: 0.1 TO 0.5 MG, 6 TIMES PER WEEK
     Dates: start: 20110201
  3. LUMINAL [Concomitant]
     Active Substance: PHENOBARBITAL SODIUM
     Dosage: UNK
  4. HIDROTISONA [Concomitant]
     Dosage: UNK
  5. LEVOTHYROXINE [Concomitant]
     Active Substance: LEVOTHYROXINE
     Dosage: UNK
  6. DESMOPRESSIN [Concomitant]
     Active Substance: DESMOPRESSIN
     Dosage: UNK

REACTIONS (1)
  - Cholelithiasis [Recovered/Resolved]

NARRATIVE: CASE EVENT DATE: 20150513
